FAERS Safety Report 6438610-2 (Version None)
Quarter: 2009Q4

REPORT INFORMATION
  Report Type: 
  Country: None (occurrence: None)
  Receive Date: 20091110
  Receipt Date: 20091026
  Transmission Date: 20100525
  Serious: No
  Sender: FDA-Public Use
  Company Number: 2009AC000191

PATIENT
  Age: 43 Year
  Sex: Male

DRUGS (20)
  1. DIGOXIN [Suspect]
     Dosage: 0.25 MG; PO
     Route: 048
     Dates: start: 20021101
  2. WARFARIN SODIUM [Concomitant]
  3. VIREAD [Concomitant]
  4. VIAGRA [Concomitant]
  5. HYDROCODONE BITARTRATE AND ACETAMINOPHEN [Concomitant]
  6. CLINDAMYCIN [Concomitant]
  7. PENICILLIN VK [Concomitant]
  8. CHANTIX [Concomitant]
  9. JANTOVEN [Concomitant]
  10. FENTANYL-100 [Concomitant]
  11. COUMADIN [Concomitant]
  12. PRO-AIR [Concomitant]
  13. AZITHROMYCIN [Concomitant]
  14. GABAPENTIN [Concomitant]
  15. FUROSEMIDE [Concomitant]
  16. OXYCODONE HCL AND ACETAMINOPHEN [Concomitant]
  17. PROVENTIL [Concomitant]
  18. CLARITHROMYCIN [Concomitant]
  19. AMITRIPTYLINE HCL [Concomitant]
  20. TOPROL-XL [Concomitant]

REACTIONS (17)
  - ACIDOSIS [None]
  - ASTHENIA [None]
  - ATRIAL SEPTAL DEFECT [None]
  - CHEST DISCOMFORT [None]
  - CLUBBING [None]
  - COAGULOPATHY [None]
  - DYSPNOEA [None]
  - HYPERTENSION [None]
  - MULTIPLE INJURIES [None]
  - NASAL DISORDER [None]
  - PALPITATIONS [None]
  - PRESYNCOPE [None]
  - TACHYCARDIA [None]
  - TELANGIECTASIA [None]
  - TREATMENT NONCOMPLIANCE [None]
  - UNEVALUABLE EVENT [None]
  - VASODILATATION [None]
